FAERS Safety Report 5355190-3 (Version None)
Quarter: 2007Q2

REPORT INFORMATION
  Report Type: 
  Country: None (occurrence: None)
  Receive Date: 20070611
  Receipt Date: 20070517
  Transmission Date: 20071010
  Serious: Yes (Other)
  Sender: FDA-Public Use
  Company Number: CHPA2007US04918

PATIENT
  Age: 53 Year
  Sex: Female
  Weight: 56.7 kg

DRUGS (2)
  1. MAALOX ANTACID/ANTIGAS RS LIQ COOL MIN (NCH) (MAGNESIUM HYDROXIDE, ALU [Suspect]
     Indication: FLATULENCE
     Dosage: 2 TSP, ONCE/SINGLE, ORAL
     Route: 048
     Dates: start: 20070411, end: 20070411
  2. SYNTHROID [Concomitant]

REACTIONS (12)
  - ABDOMINAL DISCOMFORT [None]
  - ABDOMINAL PAIN UPPER [None]
  - ADVERSE DRUG REACTION [None]
  - BOWEL SOUNDS ABNORMAL [None]
  - DYSGEUSIA [None]
  - DYSPEPSIA [None]
  - DYSPHAGIA [None]
  - EMOTIONAL DISTRESS [None]
  - FEELING HOT [None]
  - PHARMACEUTICAL PRODUCT COMPLAINT [None]
  - SENSATION OF FOREIGN BODY [None]
  - THROAT TIGHTNESS [None]
